FAERS Safety Report 9878201 (Version 4)
Quarter: 2014Q2

REPORT INFORMATION
  Report Type: Report from Study
  Country: JP (occurrence: JP)
  Receive Date: 20140206
  Receipt Date: 20140605
  Transmission Date: 20141212
  Serious: Yes (Other)
  Sender: FDA-Public Use
  Company Number: JP-PFIZER INC-2014030108

PATIENT
  Age: 68 Year
  Sex: Male
  Weight: 59.7 kg

DRUGS (5)
  1. XALKORI [Suspect]
     Indication: NON-SMALL CELL LUNG CANCER
     Dosage: 250 MG, 2X/DAY
     Route: 048
     Dates: start: 20121016, end: 20130704
  2. PRAVASTATIN [Concomitant]
     Dosage: 10 MG, 1X/DAY
     Route: 048
  3. LANSOPRAZOLE [Concomitant]
     Dosage: 15 MG, 1X/DAY
     Route: 048
     Dates: start: 20110505, end: 20130408
  4. MAGMITT [Concomitant]
     Dosage: 330 MG, 2X/DAY
     Route: 048
     Dates: start: 20120830
  5. DIHYDROCODEINE PHOSPHATE [Concomitant]
     Dosage: 10 MG, 3X/DAY
     Route: 048
     Dates: start: 20110322

REACTIONS (2)
  - Oedema peripheral [Not Recovered/Not Resolved]
  - Renal impairment [Not Recovered/Not Resolved]
